FAERS Safety Report 14854205 (Version 3)
Quarter: 2018Q2

REPORT INFORMATION
  Report Type: Spontaneous
  Country: FR (occurrence: FR)
  Receive Date: 20180507
  Receipt Date: 20180523
  Transmission Date: 20180711
  Serious: Yes (Death)
  Sender: FDA-Public Use
  Company Number: FR-BEH-2018090406

PATIENT
  Age: 80 Year
  Sex: Male

DRUGS (1)
  1. RESPREEZA [Suspect]
     Active Substance: .ALPHA.1-PROTEINASE INHIBITOR HUMAN
     Indication: PRODUCT USED FOR UNKNOWN INDICATION
     Dosage: 2 UNK, UNK
     Route: 065
     Dates: start: 201803

REACTIONS (1)
  - Death [Fatal]
